FAERS Safety Report 22348012 (Version 3)
Quarter: 2025Q4

REPORT INFORMATION
  Report Type: Report from Study
  Country: US (occurrence: US)
  Receive Date: 20230522
  Receipt Date: 20251128
  Transmission Date: 20260117
  Serious: Yes (Hospitalization, Other)
  Sender: RECORDATI
  Company Number: US-RECORDATI RARE DISEASE INC.-2023003016

PATIENT
  Sex: Male
  Weight: 59.32 kg

DRUGS (23)
  1. CYSTADROPS [Suspect]
     Active Substance: CYSTEAMINE HYDROCHLORIDE
     Indication: Cystinosis
     Dosage: 2 GTT DROPS (1 DROP IN BOTH EYES), QID
     Route: 047
  2. CYSTADROPS [Suspect]
     Active Substance: CYSTEAMINE HYDROCHLORIDE
     Dosage: 2 WEEKS ON AND THEN ONE WEEK OFF (2 GTT DROPS (1 DROP IN BOTH EYES), QID)
     Route: 047
  3. CYSTADROPS [Suspect]
     Active Substance: CYSTEAMINE HYDROCHLORIDE
     Dosage: 2 GTT DROPS (1 DROP IN BOTH EYES), QID
     Route: 047
     Dates: start: 20250703, end: 202511
  4. CLINDAMYCIN HYDROCHLORIDE [Concomitant]
     Active Substance: CLINDAMYCIN HYDROCHLORIDE
     Indication: Product used for unknown indication
     Dosage: 2 DOSAGE FORM, QD (2 TABLETS DAILY) (300 MG CAPSULE)
     Route: 048
     Dates: start: 20110802
  5. DOCUSATE SODIUM [Concomitant]
     Active Substance: DOCUSATE SODIUM
     Indication: Product used for unknown indication
     Dosage: 100 MG, QD (CAPSULE 100 MG)
     Route: 048
     Dates: start: 20230101
  6. FLOMAX [Concomitant]
     Active Substance: TAMSULOSIN HYDROCHLORIDE
     Indication: Product used for unknown indication
     Dosage: UNK
  7. FLOMAX [Concomitant]
     Active Substance: TAMSULOSIN HYDROCHLORIDE
     Dosage: 0.4 MG, QD (CAPSULE 0.4 MG)
     Route: 048
     Dates: start: 20250929
  8. FOSAMAX [Concomitant]
     Active Substance: ALENDRONATE SODIUM
     Indication: Product used for unknown indication
     Dosage: 70 MG, QW
     Route: 048
     Dates: start: 20170306
  9. METHYLPREDNISOLONE [Concomitant]
     Active Substance: METHYLPREDNISOLONE
     Indication: Product used for unknown indication
     Dosage: 4 MG, EVERY DAY
     Route: 048
     Dates: start: 20160201
  10. MYFORTIC [Concomitant]
     Active Substance: MYCOPHENOLATE SODIUM
     Indication: Product used for unknown indication
     Dosage: 180 MG, BID
     Route: 048
     Dates: start: 20081111
  11. PEPCID [Concomitant]
     Active Substance: FAMOTIDINE
     Indication: Product used for unknown indication
     Dosage: UNK
  12. PROGRAF [Concomitant]
     Active Substance: TACROLIMUS
     Indication: Product used for unknown indication
     Dosage: 5 MG QAM AND 4 MG QPM
     Route: 048
     Dates: start: 20081111
  13. PROCARDIA [Concomitant]
     Active Substance: NIFEDIPINE
     Indication: Product used for unknown indication
     Dosage: 30 MG, QD (QPM) XL
     Route: 048
     Dates: start: 20110606
  14. SYNTHROID [Concomitant]
     Active Substance: LEVOTHYROXINE SODIUM
     Indication: Product used for unknown indication
     Dosage: 125 MICROGRAM, QD (TABLET 125 MCG)
     Route: 048
     Dates: start: 20220616
  15. TEGRETOL [Concomitant]
     Active Substance: CARBAMAZEPINE
     Indication: Product used for unknown indication
     Dosage: 200 MG, BID
     Route: 048
     Dates: start: 20101130
  16. ZOCOR [Concomitant]
     Active Substance: SIMVASTATIN
     Indication: Product used for unknown indication
     Dosage: 5 MG, QD (QPM)
     Route: 048
     Dates: start: 20071203
  17. ZOFRAN [Concomitant]
     Active Substance: ONDANSETRON HYDROCHLORIDE
     Indication: Product used for unknown indication
     Dosage: 4 MG, QID (TABLET 4 MG)
     Route: 048
     Dates: start: 20110802
  18. FLONASE ALLERGY RELIEF [Concomitant]
     Active Substance: FLUTICASONE PROPIONATE
     Indication: Product used for unknown indication
     Dosage: 2 PUFFS, QAM (SUSPENSION)
     Route: 045
     Dates: start: 20120615
  19. KETOCONAZOLE [Concomitant]
     Active Substance: KETOCONAZOLE
     Indication: Product used for unknown indication
     Dosage: 2 PERCENT, BIW (SHAMPOO 2 PERCENT VIA EXTERNAL)
     Dates: start: 20110802
  20. VITAMINS [Concomitant]
     Active Substance: VITAMINS
     Indication: Product used for unknown indication
     Dosage: 1 DOSAGE FORM, QD (CAPSULE)
     Route: 048
     Dates: start: 20121025
  21. PROAIR HFA [Concomitant]
     Active Substance: ALBUTEROL SULFATE
     Indication: Product used for unknown indication
     Dosage: 2 PUFFS, EVERY 4 HOURS (AEROSOL SOLUTION)
     Dates: start: 20120615
  22. VITAMIN D3 [Concomitant]
     Active Substance: CHOLECALCIFEROL
     Indication: Product used for unknown indication
     Dosage: 50 MICROGRAM, QD (CHEWABLE TABLET 50)
     Route: 048
     Dates: start: 20220725
  23. LOPRESSOR [Concomitant]
     Active Substance: METOPROLOL TARTRATE
     Indication: Product used for unknown indication
     Dosage: 50 MG, BID, TABLET 50 MG
     Route: 048
     Dates: start: 20230505

REACTIONS (6)
  - Calculus bladder [Unknown]
  - Prostatomegaly [Unknown]
  - Abdominal pain [Unknown]
  - Calculus bladder [Unknown]
  - Prostatic disorder [Unknown]
  - Inappropriate schedule of product administration [Recovered/Resolved]
